FAERS Safety Report 6489782-5 (Version None)
Quarter: 2009Q4

REPORT INFORMATION
  Report Type: 
  Country: None (occurrence: None)
  Receive Date: 20091210
  Receipt Date: 20091210
  Transmission Date: 20100525
  Serious: Yes (Hospitalization)
  Sender: FDA-Public Use
  Company Number: None

PATIENT
  Age: 12 Year
  Sex: Female
  Weight: 12 kg

DRUGS (1)
  1. TETRABENAZINE 25MG OVATION [Suspect]

REACTIONS (1)
  - NO ADVERSE EVENT [None]
